FAERS Safety Report 10019068 (Version 1)
Quarter: 2014Q1

REPORT INFORMATION
  Report Type: Spontaneous
  Country: GB (occurrence: GB)
  Receive Date: 20140318
  Receipt Date: 20140318
  Transmission Date: 20141002
  Serious: Yes (Other)
  Sender: FDA-Public Use
  Company Number: GB-PFIZER INC-2014076328

PATIENT
  Age: 33 Year
  Sex: Female

DRUGS (3)
  1. HYDROCORTISONE SODIUM SUCCINATE [Suspect]
     Indication: PRURITUS
     Dosage: 100 MG
  2. DEXAMETHASONE [Suspect]
     Indication: PRURITUS
     Dosage: 2 MG
     Route: 042
  3. NIFEDIPINE [Concomitant]
     Indication: BLOOD PRESSURE INCREASED
     Dosage: 10 MG, SINGLE

REACTIONS (1)
  - Substance-induced psychotic disorder [Recovered/Resolved]
